FAERS Safety Report 8495423-8 (Version None)
Quarter: 2012Q3

REPORT INFORMATION
  Report Type: 
  Country: None (occurrence: None)
  Receive Date: 20120709
  Receipt Date: 20120704
  Transmission Date: 20120928
  Serious: Yes (Other)
  Sender: FDA-Public Use
  Company Number: TW-SANOFI-AVENTIS-2012SA047414

PATIENT
  Age: 51 Year
  Sex: Female

DRUGS (5)
  1. TAXOTERE [Suspect]
     Dosage: 3 WEEKLY INFUSIONS FOLLOWED BY 1 WEEK BREAK;
     Route: 042
  2. TRASTUZUMAB [Concomitant]
     Dosage: SECOND WEEK ONWARDS, 2 MG/KG (110 MG) ADDED EVERY WEEK TO 4 MG/KG
     Route: 040
  3. DEXAMETHASONE [Concomitant]
     Dosage: STRENGTH: 0.5 MG, 12 CYCLES
     Route: 048
  4. TAXOTERE [Suspect]
     Dosage: 3 WEEKLY INFUSIONS FOLLOWED BY 1 WEEK BREAK; FOR TOTAL 12 INFUSIONS
     Route: 042
  5. TRASTUZUMAB [Concomitant]
     Dosage: FIRST WEEK
     Route: 040

REACTIONS (2)
  - DACRYOSTENOSIS ACQUIRED [None]
  - LACRIMATION INCREASED [None]
